FAERS Safety Report 20035727 (Version 3)
Quarter: 2022Q1

REPORT INFORMATION
  Report Type: Report from Study
  Country: AU (occurrence: AU)
  Receive Date: 20211104
  Receipt Date: 20220125
  Transmission Date: 20220424
  Serious: Yes (Other)
  Sender: FDA-Public Use
  Company Number: AU-JNJFOC-20211056454

PATIENT
  Sex: Male

DRUGS (5)
  1. IMBRUVICA [Suspect]
     Active Substance: IBRUTINIB
     Indication: Mantle cell lymphoma recurrent
     Route: 048
     Dates: start: 20210201
  2. PANADOL [Concomitant]
     Active Substance: ACETAMINOPHEN
     Indication: Product used for unknown indication
     Dosage: START 6 X PANADOL OSTEO DAILY
     Route: 065
     Dates: start: 20210414
  3. CORTISONE [Concomitant]
     Active Substance: CORTISONE
     Indication: Product used for unknown indication
     Dosage: 23 AND 24/6/2021
     Route: 065
     Dates: start: 20210623
  4. CORTISONE [Concomitant]
     Active Substance: CORTISONE
     Dosage: 5 AND 6/8/2021
     Route: 065
     Dates: start: 20210805
  5. DIAZEPAM [Concomitant]
     Active Substance: DIAZEPAM
     Indication: Product used for unknown indication
     Route: 065

REACTIONS (15)
  - Adverse drug reaction [Recovering/Resolving]
  - Periarthritis [Not Recovered/Not Resolved]
  - Insomnia [Recovered/Resolved]
  - Arthralgia [Not Recovered/Not Resolved]
  - Myalgia [Not Recovered/Not Resolved]
  - Staphylococcal infection [Unknown]
  - Nausea [Unknown]
  - Disturbance in attention [Unknown]
  - Decreased appetite [Unknown]
  - Chills [Unknown]
  - Weight decreased [Unknown]
  - Inflammation [Unknown]
  - Diarrhoea [Unknown]
  - Malaise [Unknown]
  - Night sweats [Unknown]
